FAERS Safety Report 17994556 (Version 2)
Quarter: 2020Q3

REPORT INFORMATION
  Report Type: Spontaneous
  Country: CN (occurrence: CN)
  Receive Date: 20200708
  Receipt Date: 20200710
  Transmission Date: 20201104
  Serious: Yes (Life-Threatening, Hospitalization)
  Sender: FDA-Public Use
  Company Number: CN-CELGENEUS-CHN-20200700929

PATIENT
  Age: 67 Year
  Sex: Male
  Weight: 45 kg

DRUGS (7)
  1. TORIPALIMAB. [Suspect]
     Active Substance: TORIPALIMAB
     Indication: TONGUE NEOPLASM MALIGNANT STAGE UNSPECIFIED
     Dosage: 240 MILLIGRAM
     Route: 041
     Dates: start: 20200619, end: 20200619
  2. CISPLATIN. [Suspect]
     Active Substance: CISPLATIN
     Indication: TONGUE NEOPLASM MALIGNANT STAGE UNSPECIFIED
     Dosage: 40 MILLIGRAM
     Route: 041
     Dates: start: 20200620, end: 20200620
  3. SODIUM CHLORIDE. [Concomitant]
     Active Substance: SODIUM CHLORIDE
     Dosage: 250 MILLILITER
     Route: 041
  4. LEUCOCYTES [Concomitant]
     Indication: PROPHYLAXIS
     Route: 041
     Dates: start: 20200624
  5. SODIUM CHLORIDE. [Concomitant]
     Active Substance: SODIUM CHLORIDE
     Indication: PRODUCT USED FOR UNKNOWN INDICATION
     Dosage: 100 MILLILITER
     Route: 041
  6. ABRAXANE [Suspect]
     Active Substance: PACLITAXEL
     Indication: TONGUE NEOPLASM MALIGNANT STAGE UNSPECIFIED
     Dosage: 300 MILLIGRAM
     Route: 041
     Dates: start: 20200619, end: 20200620
  7. CISPLATIN. [Suspect]
     Active Substance: CISPLATIN
     Dosage: 30 MILLIGRAM
     Route: 041
     Dates: start: 20200621, end: 20200622

REACTIONS (2)
  - Myelosuppression [Recovering/Resolving]
  - Epistaxis [Recovering/Resolving]

NARRATIVE: CASE EVENT DATE: 20200626
